FAERS Safety Report 8880099 (Version 1)
Quarter: 2012Q4

REPORT INFORMATION
  Report Type: 
  Country: US (occurrence: US)
  Receive Date: 20121101
  Receipt Date: 20121101
  Transmission Date: 20130627
  Serious: Yes (Death)
  Sender: FDA-Public Use
  Company Number: US-TARO-2012P1011111

PATIENT
  Sex: Male

DRUGS (1)
  1. PHENYTOIN SODIUM EXTENDED CAPSULES USP 100MG [Suspect]
     Dates: start: 201001

REACTIONS (2)
  - Toxic epidermal necrolysis [Fatal]
  - Stevens-Johnson syndrome [Fatal]
